FAERS Safety Report 8151446-X (Version None)
Quarter: 2012Q1

REPORT INFORMATION
  Report Type: 
  Country: None (occurrence: None)
  Receive Date: 20120220
  Receipt Date: 20120213
  Transmission Date: 20120608
  Serious: Yes (Other)
  Sender: FDA-Public Use
  Company Number: US-BAXTER-2011BH033827

PATIENT
  Age: 6 Year
  Sex: Male
  Weight: 44 kg

DRUGS (9)
  1. GAMMAGARD LIQUID [Suspect]
     Route: 058
  2. CLARITIN [Concomitant]
     Indication: HYPERSENSITIVITY
     Route: 048
  3. GAMMAGARD LIQUID [Suspect]
     Route: 042
     Dates: start: 20080101
  4. SINGULAIR [Concomitant]
     Indication: HYPERSENSITIVITY
     Route: 048
  5. GAMMAGARD LIQUID [Suspect]
     Indication: IMMUNODEFICIENCY COMMON VARIABLE
     Route: 042
     Dates: start: 20110929, end: 20110929
  6. BENADRYL [Concomitant]
     Indication: PREMEDICATION
     Route: 048
     Dates: start: 20110929, end: 20110929
  7. GAMMAGARD LIQUID [Suspect]
     Route: 042
  8. MOTRIN [Concomitant]
     Indication: PREMEDICATION
     Route: 048
     Dates: start: 20110929, end: 20110929
  9. GAMMAGARD LIQUID [Suspect]
     Route: 042

REACTIONS (6)
  - MUSCLE SPASMS [None]
  - VOMITING [None]
  - RESPIRATORY TRACT INFECTION [None]
  - MIGRAINE [None]
  - SINUSITIS [None]
  - VERTIGO [None]
